FAERS Safety Report 5222312-4 (Version None)
Quarter: 2007Q1

REPORT INFORMATION
  Report Type: 
  Country: None (occurrence: None)
  Receive Date: 20070129
  Receipt Date: 20070117
  Transmission Date: 20070707
  Serious: Yes (Disabling)
  Sender: FDA-Public Use
  Company Number: PHEH2006US12271

PATIENT
  Age: 57 Year
  Sex: Female

DRUGS (13)
  1. GLEEVEC [Suspect]
     Indication: CHRONIC MYELOID LEUKAEMIA
     Dosage: 400 MG, QD
     Route: 048
     Dates: start: 20040128, end: 20041001
  2. GLEEVEC [Suspect]
     Dosage: 100 MG, QD
     Route: 048
     Dates: start: 20041001, end: 20041015
  3. GLEEVEC [Suspect]
     Dosage: 200 MG, QD
     Dates: start: 20041015, end: 20041030
  4. GLEEVEC [Suspect]
     Dosage: 300 MG, QD
     Dates: start: 20041030, end: 20041205
  5. GLEEVEC [Suspect]
     Dosage: 200 MG, QD
     Dates: start: 20041205, end: 20050425
  6. GLEEVEC [Suspect]
     Dosage: 200 MG, QD
     Dates: start: 20050606
  7. ATIVAN [Concomitant]
     Dosage: 1 MG, QD
     Route: 048
     Dates: start: 20040813, end: 20040827
  8. ATIVAN [Concomitant]
     Dosage: 2 MG, Q6H PRN
     Route: 048
     Dates: start: 20040813, end: 20040827
  9. ATIVAN [Concomitant]
     Dosage: 2MG Q6H PRN + 1MG QD
     Route: 048
     Dates: start: 20051017
  10. PRILOSEC [Concomitant]
     Dosage: 20 MG, QD
     Route: 048
     Dates: start: 20060107
  11. COMPAZINE [Concomitant]
     Dates: start: 20040813, end: 20050103
  12. UNIRETIC [Concomitant]
     Dosage: UNK, QD
     Route: 048
     Dates: start: 20060813
  13. LEUCINE [Concomitant]
     Dosage: PRN AC + HS
     Route: 048
     Dates: start: 20060107

REACTIONS (10)
  - ACTIVITIES OF DAILY LIVING IMPAIRED [None]
  - DIARRHOEA [None]
  - DRUG INTOLERANCE [None]
  - GASTROINTESTINAL DISORDER [None]
  - MENTAL IMPAIRMENT [None]
  - NAUSEA [None]
  - OEDEMA PERIPHERAL [None]
  - PERIORBITAL OEDEMA [None]
  - VOMITING [None]
  - WEIGHT DECREASED [None]
